FAERS Safety Report 7914170-1 (Version None)
Quarter: 2011Q4

REPORT INFORMATION
  Report Type: 
  Country: None (occurrence: None)
  Receive Date: 20111115
  Receipt Date: 20111115
  Transmission Date: 20120403
  Serious: Yes (Hospitalization, Other)
  Sender: FDA-Public Use
  Company Number: None

PATIENT
  Age: 47 Year
  Sex: Female

DRUGS (1)
  1. CLIMARA [Suspect]
     Dosage: 0.1
     Route: 062

REACTIONS (3)
  - ELECTROCARDIOGRAM ST-T SEGMENT ABNORMAL [None]
  - CHEST PAIN [None]
  - ISCHAEMIC STROKE [None]
